FAERS Safety Report 9020126 (Version 1)
Quarter: 2013Q1

REPORT INFORMATION
  Report Type: Spontaneous
  Country: US (occurrence: US)
  Receive Date: 20130119
  Receipt Date: 20130119
  Transmission Date: 20140127
  Serious: No
  Sender: FDA-Public Use
  Company Number: US-ALLERGAN-1209956US

PATIENT
  Sex: Female

DRUGS (2)
  1. BOTOX COSMETIC [Suspect]
     Indication: HYPERHIDROSIS
     Dosage: 50 UNITS, SINGLE
     Route: 023
     Dates: start: 20120326, end: 20120326
  2. BOTOX COSMETIC [Suspect]
     Dosage: 50 UNITS, SINGLE
     Dates: start: 20120326, end: 20120326

REACTIONS (1)
  - Drug ineffective [Unknown]
